FAERS Safety Report 7179170-0 (Version None)
Quarter: 2010Q4

REPORT INFORMATION
  Report Type: 
  Country: None (occurrence: None)
  Receive Date: 20101217
  Receipt Date: 20101217
  Transmission Date: 20110411
  Serious: Yes (Other)
  Sender: FDA-Public Use
  Company Number: None

PATIENT
  Age: 63 Year
  Sex: Male
  Weight: 77.4 kg

DRUGS (2)
  1. MIRTAZAPINE [Suspect]
     Indication: DEPRESSION
     Dosage: 7.5 MG HS
     Dates: start: 20101118, end: 20101213
  2. MIRTAZAPINE [Suspect]
     Indication: POST-TRAUMATIC STRESS DISORDER
     Dosage: 7.5 MG HS
     Dates: start: 20101118, end: 20101213

REACTIONS (1)
  - SUICIDAL IDEATION [None]
